FAERS Safety Report 20844924 (Version 1)
Quarter: 2022Q2

REPORT INFORMATION
  Report Type: Spontaneous
  Country: US (occurrence: US)
  Receive Date: 20220518
  Receipt Date: 20220518
  Transmission Date: 20220721
  Serious: Yes (Disabling, Other)
  Sender: FDA-Public Use
  Company Number: US-PFIZER INC-202200707150

PATIENT
  Age: 63 Year
  Sex: Male
  Weight: 97.39 kg

DRUGS (1)
  1. PAXLOVID [Suspect]
     Active Substance: NIRMATRELVIR\RITONAVIR
     Indication: COVID-19 treatment
     Dosage: [PF-07321332 150 MG]/[RITONAVIR 100 MG]; 2X/DAY
     Dates: start: 202205

REACTIONS (3)
  - Diarrhoea [Unknown]
  - Myalgia [Unknown]
  - Dysstasia [Unknown]

NARRATIVE: CASE EVENT DATE: 20220501
